FAERS Safety Report 8909667 (Version 5)
Quarter: 2013Q1

REPORT INFORMATION
  Report Type: Spontaneous
  Country: US (occurrence: None)
  Receive Date: 20121109
  Receipt Date: 20130219
  Transmission Date: 20140127
  Serious: Yes (Hospitalization)
  Sender: FDA-Public Use
  Company Number: DAV-AE-MTX-12-76

PATIENT
  Age: 65 Year
  Sex: Female
  Weight: 87.3 kg

DRUGS (16)
  1. METHOTREXATE [Suspect]
     Indication: RHEUMATOID ARTHRITIS
     Dosage: (1 IN 2 WK), PO  CNTD
     Route: 048
     Dates: start: 20120523, end: 20120905
  2. HUMIRA [Suspect]
     Indication: RHEUMATOID ARTHRITIS
     Dosage: 40MG (1 IN 2 WK), SC, CNT
     Route: 058
     Dates: start: 20120523, end: 20120829
  3. SAVELLA (MILNACIPRAN HYDROCHLORIDE) [Concomitant]
  4. ASPIRIN LOW DOSE (ACETYLSALICYLIC ACID) [Concomitant]
  5. LEVOTHYROXINE (LEVOTHYROXINE SODIUM) [Concomitant]
  6. NEURONTIN (GABAPENTIN) [Concomitant]
  7. ZOCOR (SIMVASTATIN) [Concomitant]
  8. ORACEA (DOXYCYCLINE) [Concomitant]
  9. FOLIC ACID (FOLIC ACID) [Concomitant]
  10. VOLTAREN GEL (DICLOFENAC DIETHYLAMINE) [Concomitant]
  11. INH THERAPY (ISONIAZID) [Concomitant]
  12. LORZONE [Concomitant]
  13. MULTIVITAMIN (VIGRAN) (TABLET) (ERGOCALCIFEROL, ASCORBIC ACID, PYRIDOXINE HYDROCHLORIDE, THIAMINE HYDROCHLORIDE, RETINOL, RIBOFLAVIN, NICOTINAMIDE, CALCIUM PANTOTHENATE) [Concomitant]
  14. OMEGA-3 (CAPSULE) [Concomitant]
  15. CALCTRATE (CALCIUM CARBONATE) [Concomitant]
  16. AMOXICILLIN (AMOXICILLIN TRIHYDRATE) [Concomitant]

REACTIONS (7)
  - Enterocolitis infectious [None]
  - Vomiting [None]
  - Constipation [None]
  - Melaena [None]
  - Stomatitis [None]
  - Pain [None]
  - Rash [None]
